FAERS Safety Report 23294334 (Version 1)
Quarter: 2023Q4

REPORT INFORMATION
  Report Type: Spontaneous
  Country: CN (occurrence: CN)
  Receive Date: 20231213
  Receipt Date: 20231213
  Transmission Date: 20240110
  Serious: Yes (Life-Threatening)
  Sender: FDA-Public Use
  Company Number: CN-NAPPMUNDI-GBR-2023-0112924

PATIENT
  Age: 75 Year
  Sex: Male
  Weight: 42.2 kg

DRUGS (1)
  1. OXYCONTIN [Suspect]
     Active Substance: OXYCODONE HYDROCHLORIDE
     Indication: Pancreatic carcinoma
     Dosage: 160 MILLIGRAM, Q12H
     Route: 048
     Dates: start: 20231006, end: 20231019

REACTIONS (7)
  - Poisoning [Recovered/Resolved]
  - Loss of consciousness [Recovered/Resolved]
  - Blood pressure decreased [Recovered/Resolved]
  - Oxygen saturation decreased [Recovered/Resolved]
  - Respiratory rate decreased [Recovered/Resolved]
  - Miosis [Recovered/Resolved]
  - Pupillary reflex impaired [Recovered/Resolved]

NARRATIVE: CASE EVENT DATE: 20231019
